FAERS Safety Report 23950756 (Version 3)
Quarter: 2024Q3

REPORT INFORMATION
  Report Type: Spontaneous
  Country: RO (occurrence: RO)
  Receive Date: 20240607
  Receipt Date: 20240702
  Transmission Date: 20241017
  Serious: Yes (Death, Hospitalization)
  Sender: JOHNSON AND JOHNSON
  Company Number: RO-JNJFOC-20240610324

PATIENT
  Age: 73 Year
  Sex: Male
  Weight: 82 kg

DRUGS (18)
  1. ERLEADA [Suspect]
     Active Substance: APALUTAMIDE
     Indication: Hormone-dependent prostate cancer
     Route: 048
     Dates: start: 20240509
  2. ELIGARD [Suspect]
     Active Substance: LEUPROLIDE ACETATE
     Indication: Hormone-dependent prostate cancer
     Route: 065
     Dates: start: 20240509
  3. ASPIRIN [Concomitant]
     Active Substance: ASPIRIN
     Indication: Cardiac disorder
     Route: 065
     Dates: start: 20240329
  4. OUTNESTIN [Concomitant]
     Indication: Cardiac disorder
     Dates: start: 20240329
  5. ATACAND [Concomitant]
     Active Substance: CANDESARTAN CILEXETIL
     Indication: Cardiac disorder
     Route: 048
     Dates: start: 20230329
  6. PIRACETAM [Concomitant]
     Active Substance: PIRACETAM
     Route: 050
  7. VINPOCETINE [Concomitant]
     Active Substance: VINPOCETINE
     Route: 050
  8. PYRIDOXINE HYDROCHLORIDE [Concomitant]
     Active Substance: PYRIDOXINE HYDROCHLORIDE
     Route: 050
  9. CONTROLOC [Concomitant]
     Active Substance: PANTOPRAZOLE SODIUM
     Route: 050
  10. ROSUVASTATIN CALCIUM [Concomitant]
     Active Substance: ROSUVASTATIN CALCIUM
     Route: 050
  11. TROMBEX [RIVAROXABAN] [Concomitant]
     Route: 050
  12. ENOXAPARIN SODIUM [Concomitant]
     Active Substance: ENOXAPARIN SODIUM
     Route: 050
  13. TRAMADOL HYDROCHLORIDE [Concomitant]
     Active Substance: TRAMADOL HYDROCHLORIDE
     Route: 050
  14. METOCLOPRAMIDE [Concomitant]
     Active Substance: METOCLOPRAMIDE
     Route: 050
  15. BISOPROLOL [Concomitant]
     Active Substance: BISOPROLOL\BISOPROLOL FUMARATE
     Route: 050
  16. FUROSEMIDE CF [Concomitant]
     Route: 050
  17. GLIQUIDONE [Concomitant]
     Active Substance: GLIQUIDONE
     Route: 050
  18. FLUIMUCIL [ACETYLCYSTEINE] [Concomitant]
     Dosage: 2X1 FL/DAY
     Route: 050

REACTIONS (3)
  - Cardio-respiratory arrest [Fatal]
  - Atrial fibrillation [Fatal]
  - Ischaemic stroke [Fatal]

NARRATIVE: CASE EVENT DATE: 20240521
